FAERS Safety Report 8113647-6 (Version None)
Quarter: 2012Q1

REPORT INFORMATION
  Report Type: 
  Country: None (occurrence: None)
  Receive Date: 20120203
  Receipt Date: 20120131
  Transmission Date: 20120608
  Serious: Yes (Other)
  Sender: FDA-Public Use
  Company Number: BE-PFIZER INC-2012028415

PATIENT
  Age: 54 Year
  Sex: Female

DRUGS (1)
  1. LYRICA [Suspect]
     Dosage: 300 MG
     Route: 048
     Dates: start: 20080101

REACTIONS (5)
  - DIARRHOEA [None]
  - SHOCK [None]
  - VOMITING [None]
  - SWELLING FACE [None]
  - BURNING SENSATION [None]
